FAERS Safety Report 18396730 (Version 4)
Quarter: 2021Q2

REPORT INFORMATION
  Report Type: Report from Study
  Country: US (occurrence: US)
  Receive Date: 20201019
  Receipt Date: 20210616
  Transmission Date: 20210717
  Serious: Yes (Death, Hospitalization)
  Sender: FDA-Public Use
  Company Number: US-ROCHE-2674113

PATIENT
  Age: 75 Year
  Sex: Male
  Weight: 73 kg

DRUGS (55)
  1. ACYCLOVIR [ACICLOVIR] [Concomitant]
     Active Substance: ACYCLOVIR
  2. MAG?OX [Concomitant]
     Active Substance: MAGNESIUM OXIDE
  3. FLAGYL [Concomitant]
     Active Substance: METRONIDAZOLE\METRONIDAZOLE HYDROCHLORIDE
  4. GILTERITINIB [Suspect]
     Active Substance: GILTERITINIB
     Indication: ACUTE MYELOID LEUKAEMIA
     Route: 048
     Dates: start: 20200818, end: 20201013
  5. DOCUSATE SODIUM. [Concomitant]
     Active Substance: DOCUSATE SODIUM
  6. MAGNESIUM OXIDE. [Concomitant]
     Active Substance: MAGNESIUM OXIDE
  7. MAALOX ANTACID [Concomitant]
     Active Substance: ALUMINUM HYDROXIDE\DIMETHICONE\MAGNESIUM HYDROXIDE
  8. DELTASONE [Concomitant]
     Active Substance: PREDNISONE
  9. TRAVATAN [Concomitant]
     Active Substance: TRAVOPROST
     Dosage: EYE DROPS, 0.004 %
  10. COSOPT [Concomitant]
     Active Substance: DORZOLAMIDE HYDROCHLORIDE\TIMOLOL MALEATE
  11. ZYPREXA ZYDIS [Concomitant]
     Active Substance: OLANZAPINE
     Dosage: SOLUTABLET
  12. HEPARIN [Concomitant]
     Active Substance: HEPARIN SODIUM
  13. ALUMINIUM?MAGNESIUM [Concomitant]
  14. MAALOX ANTACID [Concomitant]
     Active Substance: ALUMINUM HYDROXIDE\DIMETHICONE\MAGNESIUM HYDROXIDE
  15. POTASSIUM CHLORIDE. [Concomitant]
     Active Substance: POTASSIUM CHLORIDE
     Dosage: CENTRAL LINE ONLY (POTASSIUM CHLORIDE) INFUSION 40MEQ/100ML.
  16. CRESTOR [Concomitant]
     Active Substance: ROSUVASTATIN CALCIUM
  17. ALPHAGAN P [Concomitant]
     Active Substance: BRIMONIDINE TARTRATE
     Dosage: EYE DROPS, 0.2 %
  18. CRESEMBA [Concomitant]
     Active Substance: ISAVUCONAZONIUM SULFATE
  19. ROSUVASTATIN. [Concomitant]
     Active Substance: ROSUVASTATIN
  20. BRIMONIDINE [Concomitant]
     Active Substance: BRIMONIDINE TARTRATE
  21. VENETOCLAX. [Concomitant]
     Active Substance: VENETOCLAX
     Dates: start: 20191026, end: 20200810
  22. MAGNESIUM SULFATE. [Concomitant]
     Active Substance: MAGNESIUM SULFATE
  23. DIPHENHYDRAMINE. [Concomitant]
     Active Substance: DIPHENHYDRAMINE
     Dosage: MOUTHWASH
  24. TRUSOPT [Concomitant]
     Active Substance: DORZOLAMIDE HYDROCHLORIDE
     Dosage: EYE DROPS, 2 %
  25. CEFTIN [Concomitant]
     Active Substance: CEFUROXIME AXETIL
  26. PROTONIX [Concomitant]
     Active Substance: PANTOPRAZOLE SODIUM
  27. AUGMENTIN [Concomitant]
     Active Substance: AMOXICILLIN\CLAVULANATE POTASSIUM
  28. PERIDEX [Concomitant]
     Active Substance: CHLORHEXIDINE GLUCONATE
  29. SOLU?MEDROL [Concomitant]
     Active Substance: METHYLPREDNISOLONE SODIUM SUCCINATE
  30. IMODIUM [Concomitant]
     Active Substance: LOPERAMIDE HYDROCHLORIDE
  31. IVOSIDENIB [Concomitant]
     Active Substance: IVOSIDENIB
     Dates: start: 20190103
  32. LIDOCAINE. [Concomitant]
     Active Substance: LIDOCAINE
     Dosage: MOUTHWASH
  33. ONDANSETRON [Concomitant]
     Active Substance: ONDANSETRON
  34. ISAVUCONAZOLE [Concomitant]
     Active Substance: ISAVUCONAZOLE
     Dosage: 186
  35. PRILOSEC [Concomitant]
     Active Substance: OMEPRAZOLE MAGNESIUM
  36. ZOVIRAX [Concomitant]
     Active Substance: ACYCLOVIR
  37. ZYLOPRIM [Concomitant]
     Active Substance: ALLOPURINOL
  38. NORVASC [Concomitant]
     Active Substance: AMLODIPINE BESYLATE
  39. HEPARIN LOCK FLUSH [Concomitant]
     Active Substance: HEPARIN SODIUM
     Dosage: 300 UNITS
  40. ZOFRAN [Concomitant]
     Active Substance: ONDANSETRON HYDROCHLORIDE
  41. SODIUM BICARBONATE. [Concomitant]
     Active Substance: SODIUM BICARBONATE
  42. TIMOLOL MALEATE. [Concomitant]
     Active Substance: TIMOLOL MALEATE
  43. NOXAFIL [Concomitant]
     Active Substance: POSACONAZOLE
  44. ULTRAM [Concomitant]
     Active Substance: TRAMADOL HYDROCHLORIDE
  45. ATEZOLIZUMAB. [Suspect]
     Active Substance: ATEZOLIZUMAB
     Indication: ACUTE MYELOID LEUKAEMIA
     Dosage: LAST DOSE OF ATEZOLIZUMAB WAS ON 29/SEP/2020.
     Route: 041
     Dates: start: 20200818, end: 20200929
  46. DIPHENOXYLATE/ATROPINE [Concomitant]
     Active Substance: ATROPINE\DIPHENOXYLATE
  47. LOMOTIL [Concomitant]
     Active Substance: ATROPINE SULFATE\DIPHENOXYLATE HYDROCHLORIDE
     Dosage: 2.5?0.025 MG TABLET AT 1 TABLET,
  48. DORZOLAMID/TIMOLOL [Concomitant]
     Active Substance: DORZOLAMIDE HYDROCHLORIDE\TIMOLOL MALEATE
  49. ZOLPIDEM [Concomitant]
     Active Substance: ZOLPIDEM TARTRATE
  50. SODIUM CHLORIDE. [Concomitant]
     Active Substance: SODIUM CHLORIDE
  51. MAGNESIUM SULFATE. [Concomitant]
     Active Substance: MAGNESIUM SULFATE
     Route: 042
  52. TYLENOL [Concomitant]
     Active Substance: ACETAMINOPHEN
  53. LOMOTIL [Concomitant]
     Active Substance: ATROPINE SULFATE\DIPHENOXYLATE HYDROCHLORIDE
  54. COLACE [Concomitant]
     Active Substance: DOCUSATE SODIUM
  55. XALATAN [Concomitant]
     Active Substance: LATANOPROST

REACTIONS (5)
  - Febrile neutropenia [Recovered/Resolved]
  - Acute myeloid leukaemia [Fatal]
  - Febrile neutropenia [Recovered/Resolved]
  - Acute kidney injury [Not Recovered/Not Resolved]
  - Enterocolitis infectious [Recovered/Resolved]

NARRATIVE: CASE EVENT DATE: 20200831
